FAERS Safety Report 16302203 (Version 3)
Quarter: 2019Q3

REPORT INFORMATION
  Report Type: Report from Study
  Country: US (occurrence: US)
  Receive Date: 20190512
  Receipt Date: 20190712
  Transmission Date: 20191004
  Serious: Yes (Other)
  Sender: FDA-Public Use
  Company Number: PHHY2019US106168

PATIENT
  Age: 65 Year
  Sex: Female
  Weight: 66.67 kg

DRUGS (12)
  1. PIQRAY [Suspect]
     Active Substance: ALPELISIB
     Dosage: 250 MG, UNK
     Route: 048
     Dates: start: 20190515, end: 20190528
  2. PIQRAY [Suspect]
     Active Substance: ALPELISIB
     Dosage: 250 MG, UNK
     Route: 048
     Dates: start: 20190701, end: 20190701
  3. METFORMIN HYDROCHLORIDE. [Suspect]
     Active Substance: METFORMIN HYDROCHLORIDE
     Dosage: 500 MG, QD
     Route: 065
     Dates: start: 20190624
  4. PIQRAY [Suspect]
     Active Substance: ALPELISIB
     Dosage: 250 MG, UNK
     Route: 048
     Dates: start: 20190507
  5. PIQRAY [Suspect]
     Active Substance: ALPELISIB
     Dosage: 250 MG, UNK
     Route: 048
     Dates: start: 20190509, end: 20190514
  6. PIQRAY [Suspect]
     Active Substance: ALPELISIB
     Dosage: 250 MG, UNK
     Route: 048
     Dates: start: 20190515, end: 20190528
  7. METFORMIN HYDROCHLORIDE. [Suspect]
     Active Substance: METFORMIN HYDROCHLORIDE
     Indication: HYPERGLYCAEMIA
     Dosage: 500 MG, BID (TOOK A.M DOSE
     Route: 065
     Dates: start: 20190416, end: 20190430
  8. PIQRAY [Suspect]
     Active Substance: ALPELISIB
     Dosage: 250 MG, UNK
     Route: 048
     Dates: start: 20190701, end: 20190701
  9. PIQRAY [Suspect]
     Active Substance: ALPELISIB
     Indication: BREAST CANCER METASTATIC
     Dosage: 300 MG, UNK
     Route: 048
     Dates: start: 20190408, end: 20190416
  10. PIQRAY [Suspect]
     Active Substance: ALPELISIB
     Indication: PIK3CA-ACTIVATED MUTATION
     Dosage: 300 MG, QD
     Route: 048
     Dates: start: 20190419
  11. PIQRAY [Suspect]
     Active Substance: ALPELISIB
     Dosage: 250 MG, UNK
     Route: 048
     Dates: start: 20190507
  12. PIQRAY [Suspect]
     Active Substance: ALPELISIB
     Dosage: 250 MG, UNK
     Route: 048
     Dates: start: 20190509, end: 20190514

REACTIONS (16)
  - Platelet count decreased [Recovered/Resolved]
  - Aspartate aminotransferase increased [Not Recovered/Not Resolved]
  - Metastases to central nervous system [Unknown]
  - Blood creatinine increased [Not Recovered/Not Resolved]
  - Decreased appetite [Unknown]
  - Hyperglycaemia [Not Recovered/Not Resolved]
  - Diarrhoea [Not Recovered/Not Resolved]
  - Platelet count decreased [Recovered/Resolved]
  - Blood bilirubin increased [Recovered/Resolved]
  - Metastases to liver [Unknown]
  - Vomiting [Recovered/Resolved]
  - Blood alkaline phosphatase increased [Unknown]
  - Aspartate aminotransferase increased [Recovered/Resolved]
  - Hemiparesis [Not Recovered/Not Resolved]
  - Fall [Unknown]
  - Fatigue [Unknown]

NARRATIVE: CASE EVENT DATE: 20190409
